FAERS Safety Report 19731456 (Version 7)
Quarter: 2025Q1

REPORT INFORMATION
  Report Type: Spontaneous
  Country: JP (occurrence: JP)
  Receive Date: 20210820
  Receipt Date: 20250224
  Transmission Date: 20250408
  Serious: Yes (Life-Threatening, Hospitalization, Other)
  Sender: PFIZER
  Company Number: JP-ONO-2021JP019791

PATIENT
  Age: 84 Year
  Sex: Female

DRUGS (6)
  1. BRAFTOVI [Suspect]
     Active Substance: ENCORAFENIB
     Indication: Malignant melanoma
     Route: 048
     Dates: start: 20210726, end: 20210802
  2. BRAFTOVI [Suspect]
     Active Substance: ENCORAFENIB
     Route: 048
     Dates: start: 20210813, end: 20210814
  3. MEKTOVI [Suspect]
     Active Substance: BINIMETINIB
     Indication: Malignant melanoma
     Route: 048
     Dates: start: 20210726, end: 20210802
  4. MEKTOVI [Suspect]
     Active Substance: BINIMETINIB
     Route: 048
     Dates: start: 20210813, end: 20210814
  5. OPDIVO [Suspect]
     Active Substance: NIVOLUMAB
     Indication: Malignant melanoma
     Route: 041
     Dates: start: 20210818, end: 20210928
  6. YERVOY [Suspect]
     Active Substance: IPILIMUMAB
     Indication: Malignant melanoma
     Route: 041
     Dates: start: 20210818, end: 20210928

REACTIONS (8)
  - Acute kidney injury [Recovering/Resolving]
  - Erythema multiforme [Recovering/Resolving]
  - Erythema [Not Recovered/Not Resolved]
  - Pyrexia [Recovering/Resolving]
  - Rhabdomyolysis [Recovering/Resolving]
  - Hepatic function abnormal [Not Recovered/Not Resolved]
  - Pyrexia [Unknown]
  - Erythema [Unknown]

NARRATIVE: CASE EVENT DATE: 20210731
